FAERS Safety Report 9721533 (Version 1)
Quarter: 2013Q4

REPORT INFORMATION
  Report Type: Spontaneous
  Country: US (occurrence: US)
  Receive Date: 20131130
  Receipt Date: 20131130
  Transmission Date: 20140711
  Serious: Yes (Other)
  Sender: FDA-Public Use
  Company Number: US-BRISTOL-MYERS SQUIBB COMPANY-19870385

PATIENT
  Age: 73 Year
  Sex: Female
  Weight: 87.07 kg

DRUGS (1)
  1. METFORMIN HCL XR [Suspect]
     Dosage: FREQ: TWO TIMES DAILY

REACTIONS (1)
  - Colitis [Recovered/Resolved]
